FAERS Safety Report 6895485-5 (Version None)
Quarter: 2010Q3

REPORT INFORMATION
  Report Type: 
  Country: None (occurrence: None)
  Receive Date: 20100802
  Receipt Date: 20100723
  Transmission Date: 20110219
  Serious: Yes (Hospitalization)
  Sender: FDA-Public Use
  Company Number: PHHO2010GB11196

PATIENT
  Sex: Male

DRUGS (10)
  1. EXELON [Suspect]
     Indication: PARKINSON'S DISEASE
     Dosage: 1.5
     Route: 048
  2. CARBOCISTEINE [Concomitant]
  3. FLUOXETINE HCL [Concomitant]
  4. GLICLAZIDE [Concomitant]
  5. SINEMET [Concomitant]
  6. FLUDROCORTISONE [Concomitant]
  7. SIMVASTATIN [Concomitant]
  8. FERROUS FUMARATE [Concomitant]
  9. GAVISCON [Concomitant]
  10. FUROSEMIDE [Concomitant]

REACTIONS (6)
  - CONCOMITANT DISEASE PROGRESSION [None]
  - DYSPHAGIA [None]
  - DYSPNOEA [None]
  - LUNG CONSOLIDATION [None]
  - PNEUMONIA [None]
  - SOMNOLENCE [None]
